FAERS Safety Report 10614016 (Version 3)
Quarter: 2015Q1

REPORT INFORMATION
  Report Type: Spontaneous
  Country: JP (occurrence: JP)
  Receive Date: 20141128
  Receipt Date: 20150206
  Transmission Date: 20150720
  Serious: Yes (Life-Threatening, Other)
  Sender: FDA-Public Use
  Company Number: JP-BRISTOL-MYERS SQUIBB COMPANY-21644067

PATIENT
  Age: 68 Year
  Sex: Male
  Weight: 42 kg

DRUGS (6)
  1. IRINOTECAN HCL [Suspect]
     Active Substance: IRINOTECAN HYDROCHLORIDE
     Indication: COLON CANCER
     Dosage: 207.6 MG, Q3WK
     Route: 041
     Dates: start: 20140110, end: 20140519
  2. ERBITUX [Suspect]
     Active Substance: CETUXIMAB
     Indication: COLON CANCER
     Dosage: 1DF=5MG/ML
     Route: 041
     Dates: start: 20140110, end: 20140519
  3. PALONOSETRON HYDROCHLORIDE [Suspect]
     Active Substance: PALONOSETRON HYDROCHLORIDE
     Indication: METASTASES TO PERITONEUM
     Dosage: 0.75 MG, Q3WK
     Route: 041
     Dates: start: 20140110, end: 20140519
  4. DEXART [Suspect]
     Active Substance: DEXAMETHASONE SODIUM PHOSPHATE
     Indication: METASTASES TO PERITONEUM
     Dosage: 4.95 MG, UNK
     Route: 041
     Dates: start: 20140110, end: 20140519
  5. CALCIUM FOLINATE [Suspect]
     Active Substance: LEUCOVORIN CALCIUM
     Indication: COLON CANCER
     Dosage: 346 MG, Q3WK
     Route: 041
     Dates: start: 20140110, end: 20140519
  6. FLUORO URACIL [Suspect]
     Active Substance: FLUOROURACIL
     Indication: COLON CANCER
     Dosage: 3321.6 MG, Q3WK
     Route: 041
     Dates: start: 20140110, end: 20140519

REACTIONS (5)
  - Intestinal ischaemia [Recovered/Resolved]
  - Disseminated intravascular coagulation [Recovered/Resolved]
  - Suture rupture [Unknown]
  - Septic shock [Recovered/Resolved]
  - Lactic acidosis [Unknown]

NARRATIVE: CASE EVENT DATE: 20140525
